FAERS Safety Report 25669139 (Version 1)
Quarter: 2025Q3

REPORT INFORMATION
  Report Type: Spontaneous
  Country: US (occurrence: US)
  Receive Date: 20250812
  Receipt Date: 20250812
  Transmission Date: 20251020
  Serious: Yes (Other)
  Sender: RANBAXY
  Company Number: US-SUN PHARMACEUTICAL INDUSTRIES INC-2025R1-521638

PATIENT

DRUGS (8)
  1. MIRTAZAPINE [Suspect]
     Active Substance: MIRTAZAPINE
     Indication: Insomnia
     Route: 048
  2. MIRTAZAPINE [Suspect]
     Active Substance: MIRTAZAPINE
     Route: 048
  3. MIRTAZAPINE [Suspect]
     Active Substance: MIRTAZAPINE
     Route: 048
  4. MIRTAZAPINE [Suspect]
     Active Substance: MIRTAZAPINE
     Route: 048
  5. MIRTAZAPINE [Suspect]
     Active Substance: MIRTAZAPINE
     Route: 048
  6. AMITRIPTYLINE [Concomitant]
     Active Substance: AMITRIPTYLINE
     Indication: Insomnia
     Route: 065
  7. TRAZODONE [Concomitant]
     Active Substance: TRAZODONE HYDROCHLORIDE
     Indication: Anxiety
     Dosage: 25 MILLIGRAM, TID
     Route: 065
  8. TRAZODONE [Concomitant]
     Active Substance: TRAZODONE HYDROCHLORIDE
     Indication: Agitation

REACTIONS (1)
  - Tardive dyskinesia [Unknown]
